FAERS Safety Report 8488282-0 (Version None)
Quarter: 2012Q3

REPORT INFORMATION
  Report Type: 
  Country: None (occurrence: None)
  Receive Date: 20120705
  Receipt Date: 20120702
  Transmission Date: 20120928
  Serious: Yes (Hospitalization)
  Sender: FDA-Public Use
  Company Number: PH-PFIZER INC-2011164111

PATIENT
  Age: 24 Year
  Sex: Female
  Weight: 31 kg

DRUGS (3)
  1. AXITINIB [Suspect]
     Indication: METASTATIC RENAL CELL CARCINOMA
     Dosage: 5 MG, 2X/DAY
     Dates: start: 20110107, end: 20110202
  2. AXITINIB [Suspect]
     Dosage: 5 MG, 2X/DAY
     Dates: start: 20110711, end: 20110719
  3. AXITINIB [Suspect]
     Dosage: 7 MG, 2X/DAY
     Dates: start: 20110623, end: 20110707

REACTIONS (2)
  - ABDOMINAL PAIN [None]
  - BACK PAIN [None]
